FAERS Safety Report 20246331 (Version 1)
Quarter: 2021Q4

REPORT INFORMATION
  Report Type: Spontaneous
  Country: US (occurrence: US)
  Receive Date: 20211229
  Receipt Date: 20211229
  Transmission Date: 20220303
  Serious: No
  Sender: FDA-Public Use
  Company Number: US-PERRIGO-21US024912

PATIENT
  Age: 84 Year
  Sex: Female
  Weight: 49.887 kg

DRUGS (4)
  1. GUAIFENESIN [Suspect]
     Active Substance: GUAIFENESIN
     Indication: Respiratory tract congestion
     Dosage: 600 MG, EVERY 12 HOURS
     Route: 048
     Dates: start: 20210912
  2. COVID-19 VACCINE NOS [Suspect]
     Active Substance: COVID-19 VACCINE NOS
     Indication: Immunisation
     Dosage: UNKNOWN, SINGLE
     Route: 030
     Dates: start: 20210908, end: 20210908
  3. ASPIRIN                            /00002701/ [Concomitant]
     Indication: Cardiac operation
     Dosage: UNK
     Route: 065
     Dates: start: 2020
  4. PROPRANOLOL [Concomitant]
     Active Substance: PROPRANOLOL HYDROCHLORIDE
     Indication: Migraine
     Dosage: UNK
     Route: 065
     Dates: start: 2001

REACTIONS (1)
  - Fatigue [Unknown]

NARRATIVE: CASE EVENT DATE: 20210912
